FAERS Safety Report 8733968 (Version 2)
Quarter: 2012Q4

REPORT INFORMATION
  Report Type: 
  Country: NL (occurrence: NL)
  Receive Date: 20120821
  Receipt Date: 20121227
  Transmission Date: 20130627
  Serious: Yes (Other)
  Sender: FDA-Public Use
  Company Number: NL-TEVA-352909ISR

PATIENT
  Sex: Female

DRUGS (1)
  1. CO-TRIMOXAZOLE [Suspect]
     Dosage: SULFAMETHOXAZOLE 800mg/TRIMETHOPRIM 160mg

REACTIONS (7)
  - Monoparesis [Unknown]
  - Rheumatic disorder [Unknown]
  - Visual acuity reduced [Unknown]
  - Emotional disorder [Not Recovered/Not Resolved]
  - General physical condition abnormal [Not Recovered/Not Resolved]
  - Red blood cell sedimentation rate increased [None]
  - Malaise [None]
